FAERS Safety Report 8032520-5 (Version None)
Quarter: 2011Q4

REPORT INFORMATION
  Report Type: 
  Country: None (occurrence: None)
  Receive Date: 20111202
  Receipt Date: 20110330
  Transmission Date: 20120403
  Serious: Yes (Hospitalization, Other)
  Sender: FDA-Public Use
  Company Number: 2011SP014615

PATIENT
  Age: 43 Year
  Sex: Female
  Weight: 79.3795 kg

DRUGS (1)
  1. NUVARING [Suspect]
     Indication: CONTRACEPTION
     Dates: end: 20090401

REACTIONS (8)
  - PULMONARY EMBOLISM [None]
  - ANTIBODY TEST POSITIVE [None]
  - TREMOR [None]
  - HYDROMETRA [None]
  - DEEP VEIN THROMBOSIS [None]
  - THYROID DISORDER [None]
  - FEELING COLD [None]
  - HYPOAESTHESIA [None]
